FAERS Safety Report 5179357-2 (Version None)
Quarter: 2006Q4

REPORT INFORMATION
  Report Type: 
  Country: None (occurrence: None)
  Receive Date: 20061211
  Receipt Date: 20061204
  Transmission Date: 20070319
  Serious: Yes (Hospitalization)
  Sender: FDA-Public Use
  Company Number: 224419

PATIENT
  Age: 49 Year
  Sex: Male

DRUGS (1)
  1. RAPTIVA [Suspect]
     Indication: PSORIASIS
     Dosage: 1/WEEK, SUBCUTANEOUS
     Route: 058
     Dates: start: 20051215, end: 20060308

REACTIONS (4)
  - BLISTER [None]
  - CONDITION AGGRAVATED [None]
  - PSORIASIS [None]
  - STEVENS-JOHNSON SYNDROME [None]
